FAERS Safety Report 12639463 (Version 1)
Quarter: 2016Q3

REPORT INFORMATION
  Report Type: Spontaneous
  Country: US (occurrence: None)
  Receive Date: 20160809
  Receipt Date: 20160809
  Transmission Date: 20161109
  Serious: Yes (Hospitalization)
  Sender: FDA-Public Use
  Company Number: None

PATIENT
  Age: 64 Year
  Sex: Female
  Weight: 73.03 kg

DRUGS (6)
  1. MULTI [Concomitant]
  2. ZETIA [Concomitant]
     Active Substance: EZETIMIBE
  3. CHOLESTYRAMINE. [Suspect]
     Active Substance: CHOLESTYRAMINE
     Indication: BLOOD CHOLESTEROL INCREASED
     Route: 048
     Dates: start: 20160610, end: 20160707
  4. VITAMINS [Concomitant]
     Active Substance: VITAMINS
  5. VITAMIN E [Concomitant]
     Active Substance: .ALPHA.-TOCOPHEROL
  6. VITAMIN D [Concomitant]
     Active Substance: CHOLECALCIFEROL

REACTIONS (16)
  - Abdominal pain upper [None]
  - Constipation [None]
  - Fatigue [None]
  - Dysgeusia [None]
  - Diverticulitis [None]
  - Vertigo [None]
  - Arthralgia [None]
  - Proctalgia [None]
  - Faecal volume decreased [None]
  - Myalgia [None]
  - Nausea [None]
  - Abdominal distension [None]
  - Dizziness [None]
  - Haemorrhoidal haemorrhage [None]
  - Abnormal faeces [None]
  - Weight decreased [None]

NARRATIVE: CASE EVENT DATE: 20160717
